FAERS Safety Report 21824420 (Version 1)
Quarter: 2023Q1

REPORT INFORMATION
  Report Type: Spontaneous
  Country: CH (occurrence: CH)
  Receive Date: 20230105
  Receipt Date: 20230105
  Transmission Date: 20230418
  Serious: Yes (Other)
  Sender: FDA-Public Use
  Company Number: CH-LUNDBECK-DKLU3055826

PATIENT
  Sex: Female

DRUGS (5)
  1. REXULTI [Suspect]
     Active Substance: BREXPIPRAZOLE
     Indication: Schizophrenia
     Dosage: 1 MG
     Route: 065
     Dates: start: 20200624
  2. REXULTI [Suspect]
     Active Substance: BREXPIPRAZOLE
     Dosage: 2 MG
     Route: 065
  3. REXULTI [Suspect]
     Active Substance: BREXPIPRAZOLE
     Dosage: 3 MG
     Route: 065
     Dates: end: 202009
  4. REXULTI [Suspect]
     Active Substance: BREXPIPRAZOLE
     Dosage: FINALLY DISTRIBUTED 3-0-0-1
     Route: 065
     Dates: end: 202009
  5. QUETIAPINE FUMARATE [Concomitant]
     Active Substance: QUETIAPINE FUMARATE
     Indication: Product used for unknown indication
     Dosage: 125 MG
     Route: 065

REACTIONS (4)
  - Hallucination, auditory [Unknown]
  - Pain [Recovering/Resolving]
  - Therapy cessation [Unknown]
  - Inappropriate schedule of product administration [Unknown]
